FAERS Safety Report 9812635 (Version 1)
Quarter: 2014Q1

REPORT INFORMATION
  Report Type: Report from Study
  Country: US (occurrence: US)
  Receive Date: 20140113
  Receipt Date: 20140113
  Transmission Date: 20141002
  Serious: Yes (Life-Threatening, Hospitalization)
  Sender: FDA-Public Use
  Company Number: US-ROCHE-1330905

PATIENT
  Age: 42 Year
  Sex: Male

DRUGS (12)
  1. MYCOPHENOLATE MOFETIL [Suspect]
     Indication: RENAL TRANSPLANT
     Route: 048
     Dates: start: 20130627
  2. TACROLIMUS [Suspect]
     Indication: RENAL TRANSPLANT
     Route: 048
     Dates: start: 20130701
  3. ASPIRIN [Concomitant]
  4. VALCYTE [Concomitant]
     Route: 065
  5. COREG [Concomitant]
  6. PLAVIX [Concomitant]
  7. MYCELEX [Concomitant]
  8. HUMALOG [Concomitant]
  9. PRILOSEC [Concomitant]
  10. SENOKOT-S [Concomitant]
  11. FLOMAX (MORNIFLUMATE) [Concomitant]
  12. LANTUS [Concomitant]

REACTIONS (2)
  - Ketoacidosis [Unknown]
  - Blastomycosis [Unknown]
